FAERS Safety Report 8960806 (Version 1)
Quarter: 2012Q4

REPORT INFORMATION
  Report Type: 
  Country: US (occurrence: US)
  Receive Date: 20121212
  Receipt Date: 20121212
  Transmission Date: 20130627
  Serious: Yes (Hospitalization)
  Sender: FDA-Public Use
  Company Number: US-PFIZER INC-2012258925

PATIENT
  Age: 34 Year
  Sex: Male

DRUGS (4)
  1. SOMAVERT [Suspect]
     Dosage: UNK
     Route: 058
  2. ANDROGEL [Concomitant]
     Dosage: UNK, 62 % 2 pumps daily
  3. METFORMIN [Concomitant]
     Dosage: UNK, 500 TID
  4. HYDROCORTISONE [Concomitant]
     Dosage: 20 mg, 1x/day

REACTIONS (2)
  - Urticaria [Recovered/Resolved]
  - Dyspnoea [Recovered/Resolved]
